FAERS Safety Report 7879896-7 (Version None)
Quarter: 2011Q4

REPORT INFORMATION
  Report Type: 
  Country: None (occurrence: None)
  Receive Date: 20111101
  Receipt Date: 20111026
  Transmission Date: 20120403
  Serious: Yes (Death)
  Sender: FDA-Public Use
  Company Number: GB-ROCHE-1008069

PATIENT
  Sex: Female
  Weight: 188 kg

DRUGS (7)
  1. SIMVASTATIN [Concomitant]
     Indication: TRANSIENT ISCHAEMIC ATTACK
     Dates: start: 20070517
  2. LOSARTAN POTASSIUM [Concomitant]
     Indication: HYPERTENSION
     Dates: start: 20110802
  3. ATENOLOL [Concomitant]
     Indication: HYPERTENSION
     Dates: start: 20070517
  4. FOLIC ACID [Concomitant]
     Indication: BLOOD FOLATE DECREASED
     Dates: start: 20110802
  5. ASPIRIN AND DIPYRIDAMOLE [Concomitant]
     Indication: TRANSIENT ISCHAEMIC ATTACK
  6. ESOMEPRAZOLE [Concomitant]
     Indication: DYSPEPSIA
     Dates: start: 20110802
  7. LUCENTIS [Suspect]
     Indication: PRODUCT USED FOR UNKNOWN INDICATION
     Route: 050
     Dates: start: 20110916

REACTIONS (1)
  - CEREBROVASCULAR ACCIDENT [None]
